FAERS Safety Report 4312195-9 (Version None)
Quarter: 2004Q1

REPORT INFORMATION
  Report Type: 
  Country: None (occurrence: None)
  Receive Date: 20040303
  Receipt Date: 20040224
  Transmission Date: 20041129
  Serious: Yes (Hospitalization)
  Sender: FDA-Public Use
  Company Number: 2004010370

PATIENT
  Age: 77 Year
  Sex: Male
  Weight: 40 kg

DRUGS (5)
  1. ZITHROMAX [Suspect]
     Indication: PHARYNGITIS
     Dosage: 500 MG (DAILY), ORAL
     Route: 048
     Dates: start: 20040107, end: 20040109
  2. CEFCAPENE PIVOXIL HYDROCHLORIDE (CEFCAPENE PIVOXIL HYDROCHLORIDE) [Suspect]
     Indication: PHARYNGITIS
     Dosage: 300 MG (TID), ORAL
     Route: 048
     Dates: start: 20040109, end: 20040112
  3. LOXOPROFEN SODIUM (LOXOPROFEN SODIUM) [Suspect]
     Indication: PHARYNGITIS
     Dosage: 180 MG (TID), ORAL
     Route: 048
     Dates: start: 20040107, end: 20040109
  4. AMBROXOL HYDROCHLORIDE (AMBROXOL HYDROCHLORIDE) [Suspect]
     Indication: PHARYNGITIS
     Dosage: 45 MG (TID), ORAL
     Route: 048
     Dates: start: 20040107, end: 20040112
  5. HUSCODE (CHLORPHENAMINE MALEATE, METHYLEPHEDRINE HYDROCHLORIDE-DL, DIH [Suspect]
     Indication: PHARYNGITIS
     Dosage: (TID), ORAL
     Route: 048
     Dates: start: 20040107, end: 20040112

REACTIONS (12)
  - CARDIAC MURMUR [None]
  - DIFFICULTY IN WALKING [None]
  - DYSPNOEA [None]
  - DYSSTASIA [None]
  - ELECTROCARDIOGRAM Q WAVE ABNORMAL [None]
  - ELECTROCARDIOGRAM T WAVE INVERSION [None]
  - FALL [None]
  - MUSCULAR WEAKNESS [None]
  - MYALGIA [None]
  - PNEUMONIA [None]
  - RHABDOMYOLYSIS [None]
  - STRIDOR [None]
